FAERS Safety Report 17511251 (Version 1)
Quarter: 2020Q1

REPORT INFORMATION
  Report Type: Spontaneous
  Country: JP (occurrence: JP)
  Receive Date: 20200306
  Receipt Date: 20200306
  Transmission Date: 20200409
  Serious: Yes (Other)
  Sender: FDA-Public Use
  Company Number: NVSC2020JP061463

PATIENT
  Age: 72 Year
  Sex: Male

DRUGS (4)
  1. TEGAFUR [Suspect]
     Active Substance: TEGAFUR
     Indication: COLON CANCER
     Dosage: UNK, QD, 500MG/BODY/DAY, FOLLOWED BY 1 WEEK  REST PERIOD
     Route: 065
  2. TEGAFUR [Suspect]
     Active Substance: TEGAFUR
     Indication: ADJUVANT THERAPY
  3. CALCIUM FOLINATE [Suspect]
     Active Substance: LEUCOVORIN CALCIUM
     Indication: COLON CANCER
     Dosage: UNK, QD, 75MG/BODY/DAY, FOLLOWED BY 1 WEEK  REST PERIOD
     Route: 065
  4. CALCIUM FOLINATE [Suspect]
     Active Substance: LEUCOVORIN CALCIUM
     Indication: ADJUVANT THERAPY

REACTIONS (8)
  - Disseminated intravascular coagulation [Unknown]
  - Decreased appetite [Unknown]
  - Product use in unapproved indication [Unknown]
  - Acute hepatic failure [Recovered/Resolved]
  - Fatigue [Unknown]
  - Drug-induced liver injury [Unknown]
  - Pyrexia [Unknown]
  - Jaundice [Not Recovered/Not Resolved]
